FAERS Safety Report 23733260 (Version 5)
Quarter: 2024Q2

REPORT INFORMATION
  Report Type: Spontaneous
  Country: US (occurrence: US)
  Receive Date: 20240411
  Receipt Date: 20240621
  Transmission Date: 20240716
  Serious: Yes (Other)
  Sender: FDA-Public Use
  Company Number: US-PFIZER INC-PV202400038595

PATIENT
  Age: 75 Year
  Sex: Female
  Weight: 68.8 kg

DRUGS (2)
  1. IBRANCE [Suspect]
     Active Substance: PALBOCICLIB
     Indication: Metaplastic breast carcinoma
     Dosage: 125 MG, CYCLIC (ON DAYS 1-21 OF A 28-DAY CYCLE)
     Route: 048
     Dates: start: 20240303
  2. KEPPRA XR [Concomitant]
     Active Substance: LEVETIRACETAM
     Indication: Brain operation
     Dosage: UNK

REACTIONS (1)
  - Brain operation [Unknown]
